FAERS Safety Report 8287648-1 (Version None)
Quarter: 2012Q2

REPORT INFORMATION
  Report Type: 
  Country: None (occurrence: None)
  Receive Date: 20120416
  Receipt Date: 20120411
  Transmission Date: 20120825
  Serious: Yes (Death)
  Sender: FDA-Public Use
  Company Number: PHHY2012JP026403

PATIENT
  Age: 83 Year
  Sex: Female

DRUGS (5)
  1. EXELON [Suspect]
     Indication: DEMENTIA ALZHEIMER'S TYPE
     Dosage: 4.5 MG DAILY
     Route: 062
     Dates: start: 20111025
  2. EXELON [Suspect]
     Dosage: 18 MG DAILY
     Route: 062
  3. DIOVAN [Concomitant]
     Indication: HYPERTENSION
     Dosage: 80 MG, UNK
     Dates: start: 20050701
  4. CADUET [Concomitant]
     Indication: HYPERTENSION
     Route: 048
     Dates: start: 20120112
  5. ASPIRIN [Concomitant]
     Indication: CEREBRAL INFARCTION
     Dosage: 100 MG, UNK
     Route: 048
     Dates: start: 20050906

REACTIONS (2)
  - DEATH [None]
  - APPLICATION SITE RASH [None]
